FAERS Safety Report 7988513-7 (Version None)
Quarter: 2011Q4

REPORT INFORMATION
  Report Type: 
  Country: None (occurrence: None)
  Receive Date: 20111217
  Receipt Date: 20111208
  Transmission Date: 20120403
  Serious: Yes (Hospitalization)
  Sender: FDA-Public Use
  Company Number: US-VERTEX PHARMACEUTICALS INC.-AE-2011-004654

PATIENT
  Sex: Female

DRUGS (3)
  1. INTERFERON [Concomitant]
     Indication: HEPATITIS C
     Route: 058
     Dates: start: 20111014
  2. RIBAVIRIN [Concomitant]
     Indication: HEPATITIS C
     Route: 048
     Dates: start: 20111014
  3. INCIVEK [Suspect]
     Indication: HEPATITIS C
     Route: 048
     Dates: start: 20111014

REACTIONS (7)
  - RASH [None]
  - BRONCHOSPASM [None]
  - NEUTROPENIA [None]
  - EOSINOPHILIA [None]
  - LIP SWELLING [None]
  - SWELLING FACE [None]
  - WHEEZING [None]
